FAERS Safety Report 24845693 (Version 1)
Quarter: 2025Q1

REPORT INFORMATION
  Report Type: Spontaneous
  Country: FR (occurrence: FR)
  Receive Date: 20250115
  Receipt Date: 20250115
  Transmission Date: 20250409
  Serious: Yes (Other)
  Sender: ALEXION PHARMACEUTICALS
  Company Number: FR-ASTRAZENECA-202501GLO009591FR

PATIENT
  Age: 66 Year

DRUGS (6)
  1. QUETIAPINE [Suspect]
     Active Substance: QUETIAPINE
     Indication: Bipolar disorder
  2. LITHIUM [Suspect]
     Active Substance: LITHIUM
     Indication: Bipolar disorder
  3. OXAZEPAM [Suspect]
     Active Substance: OXAZEPAM
     Route: 065
  4. ZOPICLONE [Suspect]
     Active Substance: ZOPICLONE
  5. DICLOFENAC [Suspect]
     Active Substance: DICLOFENAC
  6. ACETAMINOPHEN [Suspect]
     Active Substance: ACETAMINOPHEN

REACTIONS (1)
  - Hypogammaglobulinaemia [Not Recovered/Not Resolved]
